FAERS Safety Report 24799082 (Version 5)
Quarter: 2025Q3

REPORT INFORMATION
  Report Type: Spontaneous
  Country: US (occurrence: US)
  Receive Date: 20250102
  Receipt Date: 20250810
  Transmission Date: 20251021
  Serious: Yes (Hospitalization)
  Sender: ALEXION PHARMACEUTICALS
  Company Number: US-AstraZeneca-CH-00776364A

PATIENT
  Sex: Female

DRUGS (4)
  1. FARXIGA [Suspect]
     Active Substance: DAPAGLIFLOZIN PROPANEDIOL
  2. LASIX [Suspect]
     Active Substance: FUROSEMIDE
     Route: 050
  3. CARVEDILOL [Concomitant]
     Active Substance: CARVEDILOL
     Route: 065
  4. ENTRESTO [Concomitant]
     Active Substance: SACUBITRIL\VALSARTAN
     Route: 065

REACTIONS (9)
  - Hypersensitivity [Unknown]
  - Emotional distress [Unknown]
  - Rash [Unknown]
  - Anhedonia [Unknown]
  - Quality of life decreased [Unknown]
  - Pain [Unknown]
  - Scar [Unknown]
  - Apathy [Unknown]
  - Impaired quality of life [Unknown]
